FAERS Safety Report 4692260-7 (Version None)
Quarter: 2005Q2

REPORT INFORMATION
  Report Type: 
  Country: None (occurrence: None)
  Receive Date: 20050614
  Receipt Date: 20050601
  Transmission Date: 20051028
  Serious: Yes (Life-Threatening, Hospitalization)
  Sender: FDA-Public Use
  Company Number: 2005080315

PATIENT
  Age: 16 Year
  Sex: Male

DRUGS (6)
  1. SULFASALAZINE [Suspect]
     Indication: COLITIS ULCERATIVE
     Dosage: 8000 MG (1 D) ORAL
     Route: 048
     Dates: start: 20020116, end: 20020327
  2. BIOFERMIN R (STREPTOCOCCUS FAECALIS) [Concomitant]
  3. PREDNISONE [Concomitant]
  4. LACTOMIN (LACTOBACILLUS SPOROGENES) [Concomitant]
  5. FERRIC SODIUM CITRATE (FERRIC SODIUM CITRATE) [Concomitant]
  6. ALFACALCIDOL (ALFACALCIDOL) [Concomitant]

REACTIONS (2)
  - GRANULOCYTOPENIA [None]
  - INFECTION [None]
